FAERS Safety Report 13055859 (Version 2)
Quarter: 2017Q1

REPORT INFORMATION
  Report Type: Spontaneous
  Country: IT (occurrence: IT)
  Receive Date: 20161222
  Receipt Date: 20170106
  Transmission Date: 20170428
  Serious: Yes (Hospitalization, Other)
  Sender: FDA-Public Use
  Company Number: IT-ASTRAZENECA-2016SF32334

PATIENT
  Age: 56 Year
  Sex: Female

DRUGS (1)
  1. BRILIQUE [Suspect]
     Active Substance: TICAGRELOR
     Route: 048
     Dates: start: 20161122, end: 20161201

REACTIONS (5)
  - Thrombocytopenia [Recovered/Resolved]
  - Epistaxis [Unknown]
  - Pruritus [Unknown]
  - Generalised erythema [Unknown]
  - Rash [Unknown]

NARRATIVE: CASE EVENT DATE: 20161130
